FAERS Safety Report 19898105 (Version 3)
Quarter: 2021Q4

REPORT INFORMATION
  Report Type: Report from Study
  Country: US (occurrence: US)
  Receive Date: 20210929
  Receipt Date: 20211015
  Transmission Date: 20220304
  Serious: Yes (Hospitalization, Other)
  Sender: FDA-Public Use
  Company Number: US-JAZZ-2021-US-008999

PATIENT
  Age: 32 Year
  Sex: Female

DRUGS (4)
  1. SOLRIAMFETOL [Suspect]
     Active Substance: SOLRIAMFETOL
     Indication: Narcolepsy
     Dosage: 150 MILLIGRAM
     Route: 048
     Dates: start: 20201013, end: 20210804
  2. ALBUTEROL [Concomitant]
     Active Substance: ALBUTEROL
  3. FOLIC ACID [Concomitant]
     Active Substance: FOLIC ACID
     Indication: Product used for unknown indication
     Dosage: UNK
  4. WELLBUTRIN XL [Concomitant]
     Active Substance: BUPROPION HYDROCHLORIDE
     Indication: Depression

REACTIONS (6)
  - Premature labour [Unknown]
  - Premature delivery [Unknown]
  - Toxicity to various agents [Unknown]
  - Dyspepsia [Unknown]
  - Headache [Unknown]
  - Exposure during pregnancy [Unknown]

NARRATIVE: CASE EVENT DATE: 20210101
